FAERS Safety Report 5523628-4 (Version None)
Quarter: 2007Q4

REPORT INFORMATION
  Report Type: 
  Country: None (occurrence: None)
  Receive Date: 20071121
  Receipt Date: 20071113
  Transmission Date: 20080405
  Serious: Yes (Hospitalization)
  Sender: FDA-Public Use
  Company Number: JP-MERCK-0711USA03278

PATIENT
  Age: 21 Month
  Sex: Male

DRUGS (3)
  1. SINGULAIR [Suspect]
     Route: 048
     Dates: start: 20071027, end: 20071031
  2. MUCODYNE [Suspect]
     Route: 048
     Dates: start: 20071027, end: 20071031
  3. POLARAMINE [Suspect]
     Route: 048
     Dates: start: 20071027, end: 20071031

REACTIONS (5)
  - ANXIETY [None]
  - ARRHYTHMIA [None]
  - HYPOTHERMIA [None]
  - PALLOR [None]
  - SOMNOLENCE [None]
